FAERS Safety Report 8763459 (Version 1)
Quarter: 2012Q4

REPORT INFORMATION
  Report Type: Spontaneous
  Country: US (occurrence: None)
  Receive Date: 20120828
  Receipt Date: 20120828
  Transmission Date: 20130627
  Serious: No
  Sender: FDA-Public Use
  Company Number: 2012-00147

PATIENT
  Age: 19 Year
  Sex: Male
  Weight: 90.72 kg

DRUGS (1)
  1. ZICAM INTENSE SINUS RELIEF [Suspect]
     Indication: NASAL CONGESTION
     Dosage: Sprayed into each nostril 1-2x
     Dates: start: 20120815, end: 20120815

REACTIONS (2)
  - Anosmia [None]
  - Ageusia [None]
